FAERS Safety Report 8110653-2 (Version None)
Quarter: 2012Q1

REPORT INFORMATION
  Report Type: 
  Country: None (occurrence: None)
  Receive Date: 20120201
  Receipt Date: 20120201
  Transmission Date: 20120608
  Serious: Yes (Hospitalization)
  Sender: FDA-Public Use
  Company Number: None

PATIENT
  Sex: Female
  Weight: 70.9 kg

DRUGS (1)
  1. FEMARA [Suspect]
     Indication: BREAST CANCER
     Dosage: 2.5 MG PO ONCE DAILY
     Route: 048
     Dates: end: 20120106

REACTIONS (4)
  - DYSPNOEA [None]
  - CELLULITIS [None]
  - ASTHENIA [None]
  - DEEP VEIN THROMBOSIS [None]
